FAERS Safety Report 8064477-5 (Version None)
Quarter: 2012Q1

REPORT INFORMATION
  Report Type: 
  Country: None (occurrence: None)
  Receive Date: 20120123
  Receipt Date: 20120120
  Transmission Date: 20120608
  Serious: No
  Sender: FDA-Public Use
  Company Number: US-BAYER-2012-006867

PATIENT
  Sex: Male

DRUGS (5)
  1. BUPROPION HYDROCHLORIDE [Concomitant]
     Dosage: 75 MG, UNK
  2. ANDROGEL [Concomitant]
  3. FLUOXETINE [Concomitant]
     Dosage: 10 MG, UNK
  4. REQUIP [Concomitant]
     Dosage: 0.5 MG, UNK
  5. BETASERON [Suspect]
     Dosage: 8 MIU, QOD
     Route: 058

REACTIONS (2)
  - INFLUENZA [None]
  - CHILLS [None]
